FAERS Safety Report 5294348-9 (Version None)
Quarter: 2007Q2

REPORT INFORMATION
  Report Type: 
  Country: None (occurrence: None)
  Receive Date: 20070412
  Receipt Date: 20070328
  Transmission Date: 20071010
  Serious: Yes (Hospitalization)
  Sender: FDA-Public Use
  Company Number: KR-JNJFOC-20070203921

PATIENT
  Sex: Female
  Weight: 49.8 kg

DRUGS (13)
  1. BLINDED; INFLIXIMAB, RECOMBINANT [Suspect]
     Indication: RHEUMATOID ARTHRITIS
     Route: 042
  2. PLACEBO [Suspect]
     Indication: RHEUMATOID ARTHRITIS
     Route: 042
  3. MTX [Suspect]
     Indication: RHEUMATOID ARTHRITIS
     Route: 048
  4. ADCAL [Concomitant]
     Dosage: DOSE=1 TABLET
     Route: 048
  5. ADCAL [Concomitant]
     Indication: OSTEOPOROSIS
     Route: 048
  6. METHYLON [Concomitant]
     Route: 048
  7. METHYLON [Concomitant]
     Indication: RHEUMATOID ARTHRITIS
     Route: 048
  8. MOBIC [Concomitant]
     Indication: RHEUMATOID ARTHRITIS
     Route: 048
  9. FOLIN [Concomitant]
     Route: 048
  10. FOLIN [Concomitant]
     Indication: RHEUMATOID ARTHRITIS
     Route: 048
  11. ACTONEL [Concomitant]
     Route: 048
  12. ACTONEL [Concomitant]
     Indication: OSTEOPOROSIS
     Route: 048
  13. TYLENOL [Concomitant]
     Indication: RHEUMATOID ARTHRITIS
     Route: 048

REACTIONS (1)
  - PNEUMONITIS CRYPTOCOCCAL [None]
